FAERS Safety Report 7950424-0 (Version None)
Quarter: 2011Q4

REPORT INFORMATION
  Report Type: 
  Country: None (occurrence: None)
  Receive Date: 20111130
  Receipt Date: 20111116
  Transmission Date: 20120403
  Serious: Yes (Hospitalization)
  Sender: FDA-Public Use
  Company Number: US-MYLANLABS-2011S1024085

PATIENT
  Age: 69 Year
  Sex: Male

DRUGS (1)
  1. AMIODARONE HCL [Suspect]
     Route: 065

REACTIONS (4)
  - PERICARDIAL EFFUSION [None]
  - CARDIAC TAMPONADE [None]
  - HYPOTHYROIDISM [None]
  - HYPOTENSION [None]
